FAERS Safety Report 11863411 (Version 1)
Quarter: 2015Q4

REPORT INFORMATION
  Report Type: Spontaneous
  Country: IT (occurrence: IT)
  Receive Date: 20151223
  Receipt Date: 20151223
  Transmission Date: 20160305
  Serious: Yes (Other)
  Sender: FDA-Public Use
  Company Number: IT-ACTAVIS-2015-28191

PATIENT
  Age: 27 Year
  Sex: Male

DRUGS (2)
  1. OXALIPLATIN (UNKNOWN) [Suspect]
     Active Substance: OXALIPLATIN
     Indication: COLON CANCER
     Dosage: 260 MG, CYCLICAL
     Route: 042
     Dates: start: 20150625, end: 20151203
  2. CAPECITABINE. [Concomitant]
     Active Substance: CAPECITABINE
     Indication: COLON CANCER
     Dosage: 4 G, UNK
     Route: 048
     Dates: start: 20150625

REACTIONS (5)
  - Tremor [Recovered/Resolved]
  - Vomiting [Recovered/Resolved]
  - Nausea [Recovered/Resolved]
  - Erythema [Recovered/Resolved]
  - Paraesthesia [Recovered/Resolved]

NARRATIVE: CASE EVENT DATE: 20151203
